FAERS Safety Report 8956829 (Version 1)
Quarter: 2012Q4

REPORT INFORMATION
  Report Type: 
  Country: US (occurrence: US)
  Receive Date: 20121210
  Receipt Date: 20121210
  Transmission Date: 20130627
  Serious: Yes (Other)
  Sender: FDA-Public Use
  Company Number: US-BAYER-2012-129307

PATIENT
  Age: 65 Year
  Sex: Female
  Weight: 70.3 kg

DRUGS (1)
  1. ALKA-SELTZER PLUS FLU FORMULA [Suspect]
     Indication: COMMON COLD
     Dosage: 2 DF, ONCE
     Route: 048
     Dates: start: 20121205, end: 20121205

REACTIONS (2)
  - None [Recovered/Resolved]
  - Loss of consciousness [Recovered/Resolved]
